FAERS Safety Report 8433863-3 (Version None)
Quarter: 2012Q2

REPORT INFORMATION
  Report Type: 
  Country: None (occurrence: None)
  Receive Date: 20120613
  Receipt Date: 20120608
  Transmission Date: 20120825
  Serious: Yes (Hospitalization)
  Sender: FDA-Public Use
  Company Number: US-PFIZER INC-2012138596

PATIENT
  Sex: Female
  Weight: 58.05 kg

DRUGS (2)
  1. TORISEL [Suspect]
     Indication: RENAL CANCER
     Dosage: 25 MG, WEEKLY
     Dates: start: 20120501, end: 20120601
  2. SYNTHROID [Concomitant]
     Indication: THYROID DISORDER
     Dosage: 0.075 MG, DAILY

REACTIONS (3)
  - NAUSEA [None]
  - INTERNATIONAL NORMALISED RATIO ABNORMAL [None]
  - VOMITING [None]
